FAERS Safety Report 9517445 (Version 1)
Quarter: 2013Q3

REPORT INFORMATION
  Report Type: Spontaneous
  Country: GB (occurrence: GB)
  Receive Date: 20130911
  Receipt Date: 20130911
  Transmission Date: 20140515
  Serious: Yes (Hospitalization, Other)
  Sender: FDA-Public Use
  Company Number: GB-WATSON-2013-16249

PATIENT
  Sex: 0

DRUGS (2)
  1. AMOXICILLIN (UNKNOWN) [Suspect]
     Indication: CHRONIC OBSTRUCTIVE PULMONARY DISEASE
     Dosage: 250 MG, TID
     Route: 048
     Dates: start: 20121207
  2. CLARITHROMYCIN (UNKNOWN) [Suspect]
     Indication: CHRONIC OBSTRUCTIVE PULMONARY DISEASE
     Dosage: 250 MG, BID
     Route: 048
     Dates: start: 20121228

REACTIONS (2)
  - Treatment failure [Unknown]
  - Infective exacerbation of chronic obstructive airways disease [Unknown]
